FAERS Safety Report 11152309 (Version 1)
Quarter: 2015Q2

REPORT INFORMATION
  Report Type: Spontaneous
  Country: US (occurrence: None)
  Receive Date: 20150529
  Receipt Date: 20150529
  Transmission Date: 20150821
  Serious: No
  Sender: FDA-Public Use
  Company Number: None

PATIENT
  Age: 38 Year
  Sex: Female
  Weight: 69.4 kg

DRUGS (6)
  1. NUVARING [Concomitant]
     Active Substance: ETHINYL ESTRADIOL\ETONOGESTREL
  2. MODAFINIL. [Concomitant]
     Active Substance: MODAFINIL
  3. WELLBUTRIN [Concomitant]
     Active Substance: BUPROPION HYDROCHLORIDE
  4. LEXAPRO [Concomitant]
     Active Substance: ESCITALOPRAM OXALATE
  5. MODAFINIL. [Suspect]
     Active Substance: MODAFINIL
     Indication: NARCOLEPSY
     Route: 048
     Dates: start: 20150404, end: 20150528
  6. BIOTIN [Suspect]
     Active Substance: BIOTIN

REACTIONS (5)
  - Product taste abnormal [None]
  - Product formulation issue [None]
  - Drug ineffective [None]
  - Disease recurrence [None]
  - Narcolepsy [None]

NARRATIVE: CASE EVENT DATE: 20150404
